FAERS Safety Report 11919211 (Version 1)
Quarter: 2016Q1

REPORT INFORMATION
  Report Type: Spontaneous
  Country: US (occurrence: None)
  Receive Date: 20160114
  Receipt Date: 20160114
  Transmission Date: 20160526
  Serious: Yes (Other)
  Sender: FDA-Public Use
  Company Number: None

PATIENT
  Age: 58 Year
  Sex: Female
  Weight: 92.53 kg

DRUGS (7)
  1. CREON [Suspect]
     Active Substance: PANCRELIPASE AMYLASE\PANCRELIPASE LIPASE\PANCRELIPASE PROTEASE
     Indication: DYSPEPSIA
     Dosage: 1-3 CAPSULES
     Route: 048
     Dates: start: 20150509, end: 20160113
  2. VALSARTAN. [Concomitant]
     Active Substance: VALSARTAN
  3. ALKA SELTER [Concomitant]
  4. NEXIUM [Concomitant]
     Active Substance: ESOMEPRAZOLE MAGNESIUM
  5. C-PAP MACHINE [Concomitant]
     Active Substance: DEVICE
  6. SPIRONOLACTONE. [Concomitant]
     Active Substance: SPIRONOLACTONE
  7. ADVIL [Concomitant]
     Active Substance: IBUPROFEN

REACTIONS (4)
  - Lymphoedema [None]
  - Abdominal distension [None]
  - Blood uric acid increased [None]
  - Joint swelling [None]

NARRATIVE: CASE EVENT DATE: 20160112
